FAERS Safety Report 4565548-8 (Version None)
Quarter: 2005Q1

REPORT INFORMATION
  Report Type: 
  Country: None (occurrence: None)
  Receive Date: 20050131
  Receipt Date: 20050119
  Transmission Date: 20050727
  Serious: Yes (Other)
  Sender: FDA-Public Use
  Company Number: US-NOVOPROD-241753

PATIENT
  Age: 69 Year
  Sex: Female

DRUGS (1)
  1. PRANDIN [Suspect]
     Indication: DIABETES MELLITUS NON-INSULIN-DEPENDENT
     Dosage: UNK, TID
     Route: 048
     Dates: end: 20041125

REACTIONS (3)
  - ULTRASOUND LIVER ABNORMAL [None]
  - WEIGHT DECREASED [None]
  - WHITE BLOOD CELL COUNT INCREASED [None]
